FAERS Safety Report 7302227-8 (Version None)
Quarter: 2011Q1

REPORT INFORMATION
  Report Type: 
  Country: None (occurrence: None)
  Receive Date: 20110218
  Receipt Date: 20110215
  Transmission Date: 20110831
  Serious: Yes (Hospitalization)
  Sender: FDA-Public Use
  Company Number: GXBR2011US00729

PATIENT
  Sex: Female
  Weight: 88.435 kg

DRUGS (9)
  1. COREG [Concomitant]
     Indication: HYPERTENSION
     Dosage: UNK
  2. ACTIFED [Concomitant]
     Dosage: UNK
  3. TRICOR [Concomitant]
     Indication: BLOOD CHOLESTEROL INCREASED
     Dosage: UNK
  4. FUROSEMIDE [Concomitant]
     Dosage: UNK
  5. METOPROLOL [Concomitant]
     Indication: HYPERTENSION
     Dosage: UNK
  6. LIPITOR [Concomitant]
     Indication: BLOOD CHOLESTEROL INCREASED
     Dosage: UNK
  7. ISOSORBIDE DINITRATE [Concomitant]
     Indication: CARDIAC DISORDER
     Dosage: UNK
  8. ENOXAPARIN SODIUM [Suspect]
     Indication: DEEP VEIN THROMBOSIS
     Dosage: 150 MG, QD
     Route: 058
     Dates: start: 20101201
  9. GLYBURIDE [Concomitant]
     Indication: DIABETES MELLITUS
     Dosage: UNK

REACTIONS (2)
  - NON-CARDIAC CHEST PAIN [None]
  - BLOOD TEST ABNORMAL [None]
